FAERS Safety Report 14903393 (Version 1)
Quarter: 2018Q2

REPORT INFORMATION
  Report Type: Spontaneous
  Country: US (occurrence: US)
  Receive Date: 20180516
  Receipt Date: 20180516
  Transmission Date: 20180711
  Serious: No
  Sender: FDA-Public Use
  Company Number: US-SA-2017SA140425

PATIENT
  Age: 86 Year
  Sex: Male

DRUGS (3)
  1. LANTUS SOLOSTAR [Suspect]
     Active Substance: INSULIN GLARGINE
     Indication: TYPE 2 DIABETES MELLITUS
     Dosage: DOSE:25 UNIT(S)
     Route: 051
  2. ASPIRIN. [Concomitant]
     Active Substance: ASPIRIN
     Route: 065
  3. SOLOSTAR [Suspect]
     Active Substance: DEVICE
     Indication: TYPE 2 DIABETES MELLITUS

REACTIONS (8)
  - Muscle spasms [Unknown]
  - Device use issue [Unknown]
  - Glycosylated haemoglobin increased [Unknown]
  - Injection site discolouration [Not Recovered/Not Resolved]
  - Product storage error [Unknown]
  - Drug dose omission [Unknown]
  - Product use issue [Unknown]
  - Injection site bruising [Unknown]
